FAERS Safety Report 26075006 (Version 1)
Quarter: 2025Q4

REPORT INFORMATION
  Report Type: Spontaneous
  Country: US (occurrence: US)
  Receive Date: 20251121
  Receipt Date: 20251121
  Transmission Date: 20260118
  Serious: No
  Sender: PFIZER
  Company Number: US-PFIZER INC-PV202400091806

PATIENT
  Age: 86 Year
  Sex: Female

DRUGS (1)
  1. IBRANCE [Suspect]
     Active Substance: PALBOCICLIB
     Dosage: 100 MG PO ASDIR. ONC TAKE 1 TAB PO EVERY ALTERNATE DAY
     Route: 048

REACTIONS (2)
  - Oral pain [Unknown]
  - Off label use [Unknown]
